FAERS Safety Report 20174030 (Version 1)
Quarter: 2021Q4

REPORT INFORMATION
  Report Type: Other
  Country: CZ (occurrence: CZ)
  Receive Date: 20211213
  Receipt Date: 20211213
  Transmission Date: 20220303
  Serious: Yes (Hospitalization)
  Sender: FDA-Public Use
  Company Number: CZ-POLPHARMA-1241263

PATIENT
  Age: 27 Year
  Sex: Female
  Weight: 128.5 kg

DRUGS (4)
  1. MELPERONE [Suspect]
     Active Substance: MELPERONE
     Indication: Product used for unknown indication
     Dosage: 50 MG IN THE EVENING
     Route: 065
  2. FLUPENTIXOL [Suspect]
     Active Substance: FLUPENTIXOL
     Indication: Product used for unknown indication
     Route: 065
  3. CLONAZEPAM [Suspect]
     Active Substance: CLONAZEPAM
     Indication: Anxiety
     Route: 065
  4. QUETIAPINE [Suspect]
     Active Substance: QUETIAPINE
     Indication: Product used for unknown indication
     Dosage: 200 MG DAILY
     Route: 065

REACTIONS (3)
  - Seizure [Unknown]
  - Therapeutic product effect incomplete [Unknown]
  - Weight increased [Recovered/Resolved]
